FAERS Safety Report 7759672-6 (Version None)
Quarter: 2011Q3

REPORT INFORMATION
  Report Type: 
  Country: None (occurrence: None)
  Receive Date: 20110919
  Receipt Date: 20110906
  Transmission Date: 20111222
  Serious: Yes (Hospitalization)
  Sender: FDA-Public Use
  Company Number: US-JNJFOC-20110102530

PATIENT
  Sex: Male
  Weight: 49.6 kg

DRUGS (6)
  1. TYLENOL COLD [Suspect]
     Indication: PYREXIA
  2. TYLENOL COLD [Suspect]
     Indication: COUGH
  3. MOTRIN [Suspect]
     Indication: PYREXIA
  4. TYLENOL-500 [Suspect]
     Indication: THROAT IRRITATION
     Route: 048
  5. TYLENOL-500 [Suspect]
     Route: 048
  6. TYLENOL W/ CODEINE [Suspect]
     Indication: PAIN

REACTIONS (1)
  - STEVENS-JOHNSON SYNDROME [None]
